FAERS Safety Report 6731996-0 (Version None)
Quarter: 2010Q2

REPORT INFORMATION
  Report Type: 
  Country: None (occurrence: None)
  Receive Date: 20100519
  Receipt Date: 20100505
  Transmission Date: 20101027
  Serious: Yes (Disabling, Congenital Anomaly)
  Sender: FDA-Public Use
  Company Number: FR-AMGEN-US212260

PATIENT
  Sex: Male

DRUGS (1)
  1. ENBREL [Suspect]
     Indication: DRUG USE FOR UNKNOWN INDICATION
     Dosage: 25 MG 2 TIMES FOR THE FIRST FIFTEEN DAYS OF PREGNANCY
     Route: 064
     Dates: start: 20060815, end: 20060830

REACTIONS (1)
  - TALIPES [None]
